FAERS Safety Report 9394636 (Version 3)
Quarter: 2013Q3

REPORT INFORMATION
  Report Type: Report from Study
  Country: US (occurrence: US)
  Receive Date: 20130711
  Receipt Date: 20130829
  Transmission Date: 20140515
  Serious: Yes (Hospitalization)
  Sender: FDA-Public Use
  Company Number: US-PURDUE-USA-2013-0104299

PATIENT
  Sex: Female

DRUGS (1)
  1. OXYCONTIN (NDA 22-272) [Suspect]
     Indication: PRODUCT USED FOR UNKNOWN INDICATION
     Dosage: 120 MG, BID
     Route: 048

REACTIONS (4)
  - Fall [Recovered/Resolved]
  - Balance disorder [Recovered/Resolved]
  - Pulmonary sepsis [Recovered/Resolved]
  - Chronic obstructive pulmonary disease [Unknown]
